FAERS Safety Report 7272852-1 (Version None)
Quarter: 2011Q1

REPORT INFORMATION
  Report Type: 
  Country: None (occurrence: None)
  Receive Date: 20110203
  Receipt Date: 20110125
  Transmission Date: 20110831
  Serious: Yes (Hospitalization)
  Sender: FDA-Public Use
  Company Number: NL-ASTRAZENECA-2011SE04554

PATIENT
  Age: 12096 Day
  Sex: Female
  Weight: 43 kg

DRUGS (6)
  1. STEDIRIL [Concomitant]
     Dosage: 1 DF CYCLICAL
     Route: 048
  2. ARTHROTEC [Suspect]
     Indication: JUVENILE ARTHRITIS
     Route: 048
     Dates: start: 20070101, end: 20110106
  3. CALCI CHEW D3 [Concomitant]
     Dosage: 500MG/400IE, ONE TABLET DAILY
     Route: 048
     Dates: start: 20060101
  4. NEXIUM [Suspect]
     Indication: GASTROOESOPHAGEAL REFLUX DISEASE
     Route: 048
     Dates: start: 20100728, end: 20110106
  5. ARAVA [Suspect]
     Indication: JUVENILE ARTHRITIS
     Route: 048
     Dates: start: 20101005, end: 20101226
  6. MORFINE [Concomitant]
     Route: 048

REACTIONS (2)
  - PANCREATITIS ACUTE [None]
  - POLYNEUROPATHY [None]
